FAERS Safety Report 11127449 (Version 1)
Quarter: 2015Q2

REPORT INFORMATION
  Report Type: Spontaneous
  Country: US (occurrence: US)
  Receive Date: 20150521
  Receipt Date: 20150521
  Transmission Date: 20150821
  Serious: No
  Sender: FDA-Public Use
  Company Number: US-TEVA-550940USA

PATIENT
  Sex: Male

DRUGS (3)
  1. MORPHINE [Suspect]
     Active Substance: MORPHINE
     Route: 064
  2. METHADONE [Suspect]
     Active Substance: METHADONE HYDROCHLORIDE
     Route: 064
  3. BUPRENORPHINE [Suspect]
     Active Substance: BUPRENORPHINE
     Route: 064

REACTIONS (3)
  - Victim of crime [Unknown]
  - Drug screen positive [Unknown]
  - Foetal exposure during pregnancy [Unknown]
